FAERS Safety Report 6842633-9 (Version None)
Quarter: 2010Q3

REPORT INFORMATION
  Report Type: 
  Country: None (occurrence: None)
  Receive Date: 20100714
  Receipt Date: 20070805
  Transmission Date: 20110219
  Serious: Yes (Other)
  Sender: FDA-Public Use
  Company Number: US-PFIZER INC-2007065834

PATIENT
  Sex: Female
  Weight: 63.636 kg

DRUGS (13)
  1. CHANTIX [Suspect]
     Indication: SMOKING CESSATION THERAPY
     Dosage: EVERYDAY
     Route: 048
     Dates: start: 20070701
  2. LASIX [Concomitant]
  3. PHENERGAN EXPECTORANT [Concomitant]
  4. LYRICA [Concomitant]
  5. NEXIUM [Concomitant]
  6. SYNTHROID [Concomitant]
  7. CYMBALTA [Concomitant]
  8. POTASSIUM CHLORIDE [Concomitant]
  9. PERCOCET [Concomitant]
  10. SOMA [Concomitant]
  11. LANTUS [Concomitant]
  12. NOVOLOG [Concomitant]
  13. VALIUM [Concomitant]

REACTIONS (3)
  - BLOOD POTASSIUM DECREASED [None]
  - DYSPNOEA [None]
  - FEAR [None]
